FAERS Safety Report 10551325 (Version 2)
Quarter: 2015Q2

REPORT INFORMATION
  Report Type: Spontaneous
  Country: US (occurrence: None)
  Receive Date: 20141020
  Receipt Date: 20150420
  Transmission Date: 20150821
  Serious: No
  Sender: FDA-Public Use
  Company Number: AEGR000691

PATIENT
  Age: 33 Year
  Sex: Male
  Weight: 74.4 kg

DRUGS (10)
  1. COLESEVELAM [Concomitant]
     Active Substance: COLESEVELAM
  2. CRESTOR [Concomitant]
     Active Substance: ROSUVASTATIN CALCIUM
  3. NIASPAN (NICOTINIC ACID) [Concomitant]
  4. ASPIRIN (ACETYLSALICYLIC ACID) [Concomitant]
     Active Substance: ASPIRIN
  5. EZETIMIBE. [Concomitant]
     Active Substance: EZETIMIBE
  6. NIACIN. [Concomitant]
     Active Substance: NIACIN
  7. ZETIA [Concomitant]
     Active Substance: EZETIMIBE
  8. WELCHOL (COLESEVELAM HYDROCHLORIDE) [Concomitant]
  9. JUXTAPID [Suspect]
     Active Substance: LOMITAPIDE MESYLATE
     Indication: TYPE IIA HYPERLIPIDAEMIA
     Route: 048
     Dates: start: 20131120, end: 20131204
  10. ROSUVASTATIN [Concomitant]
     Active Substance: ROSUVASTATIN

REACTIONS (1)
  - Nausea [None]

NARRATIVE: CASE EVENT DATE: 20131206
